FAERS Safety Report 11552238 (Version 2)
Quarter: 2015Q4

REPORT INFORMATION
  Report Type: Spontaneous
  Country: US (occurrence: None)
  Receive Date: 20150923
  Receipt Date: 20151019
  Transmission Date: 20160304
  Serious: Yes (Death)
  Sender: FDA-Public Use
  Company Number: 1713747-2015-999327

PATIENT
  Sex: Male
  Weight: 145 kg

DRUGS (6)
  1. FRESENIUS 0.9% SALINE SOLUTION, 1L 12PK [Suspect]
     Active Substance: SODIUM CHLORIDE
     Indication: HAEMODIALYSIS
     Dosage: NI/NI/IV
     Route: 042
  2. FRESENIUS COMBISET [Concomitant]
  3. 2008K2 HEMODIALYSIS MACHINE [Concomitant]
  4. HEPARIN [Concomitant]
     Active Substance: HEPARIN SODIUM
  5. OPTIFLUX 250NR DIALYZER [Concomitant]
  6. FRESENIUS ACID/BICARBONATE [Concomitant]

REACTIONS (5)
  - Oedema [None]
  - Hypotension [None]
  - Cardio-respiratory arrest [None]
  - Arrhythmia [None]
  - Acute myocardial infarction [None]

NARRATIVE: CASE EVENT DATE: 20150826
